FAERS Safety Report 14996465 (Version 1)
Quarter: 2018Q2

REPORT INFORMATION
  Report Type: Spontaneous
  Country: US (occurrence: US)
  Receive Date: 20180522
  Receipt Date: 20180522
  Transmission Date: 20180711
  Serious: Yes (Other)
  Sender: FDA-Public Use
  Company Number: None

PATIENT
  Age: 37 Year
  Sex: Female
  Weight: 60.75 kg

DRUGS (2)
  1. WELLBUTRIN [Concomitant]
     Active Substance: BUPROPION HYDROCHLORIDE
     Dates: start: 20180108
  2. LAMICTAL [Suspect]
     Active Substance: LAMOTRIGINE
     Indication: AFFECTIVE DISORDER
     Route: 048
     Dates: start: 20180108, end: 20180514

REACTIONS (7)
  - Hypotension [None]
  - Vulvovaginal dryness [None]
  - Decreased interest [None]
  - Dizziness [None]
  - Libido decreased [None]
  - Balance disorder [None]
  - Visual impairment [None]

NARRATIVE: CASE EVENT DATE: 20180507
